FAERS Safety Report 9726621 (Version 1)
Quarter: 2013Q4

REPORT INFORMATION
  Report Type: Spontaneous
  Country: IT (occurrence: IT)
  Receive Date: 20131203
  Receipt Date: 20131203
  Transmission Date: 20140711
  Serious: Yes (Other)
  Sender: FDA-Public Use
  Company Number: IT-GLAXOSMITHKLINE-B0950002A

PATIENT
  Age: 88 Year
  Sex: Male

DRUGS (8)
  1. WELLBUTRIN [Suspect]
     Indication: DEPRESSION
     Dosage: 150MG PER DAY
     Route: 048
     Dates: start: 20131001, end: 20131116
  2. SAMYR [Suspect]
     Indication: PRODUCT USED FOR UNKNOWN INDICATION
     Dosage: 1UNIT PER DAY
     Route: 030
     Dates: start: 20131115
  3. DENIBAN [Suspect]
     Indication: DEPRESSION
     Dosage: 50MG PER DAY
     Route: 048
     Dates: start: 20131001, end: 20131116
  4. LAMICTAL [Concomitant]
     Dosage: 150MG PER DAY
     Route: 048
  5. REMERON [Concomitant]
     Dosage: 30MG PER DAY
     Route: 048
  6. ELOPRAM [Concomitant]
     Dosage: 14DROP PER DAY
     Route: 048
  7. OMNIC [Concomitant]
     Dosage: 1UNIT PER DAY
     Route: 065
  8. CARDIOASPIRIN [Concomitant]
     Dosage: 1UNIT PER DAY
     Route: 065

REACTIONS (2)
  - Malaise [Recovering/Resolving]
  - Confusional state [Recovering/Resolving]
